FAERS Safety Report 5340449-6 (Version None)
Quarter: 2007Q2

REPORT INFORMATION
  Report Type: 
  Country: None (occurrence: None)
  Receive Date: 20070531
  Receipt Date: 20070521
  Transmission Date: 20071010
  Serious: Yes (Other)
  Sender: FDA-Public Use
  Company Number: FR-PFIZER INC-2007040702

PATIENT
  Age: 78 Year
  Sex: Female

DRUGS (6)
  1. LYRICA [Suspect]
     Indication: BACK PAIN
  2. CLOPIDOGREL [Concomitant]
  3. MIRTAZAPINE [Concomitant]
  4. ALPRAZOLAM [Concomitant]
  5. DILTIAZEM [Concomitant]
  6. SIMVASTATIN [Concomitant]

REACTIONS (1)
  - HAEMATOMA [None]
